FAERS Safety Report 25924177 (Version 2)
Quarter: 2025Q4

REPORT INFORMATION
  Report Type: Spontaneous
  Country: JP (occurrence: JP)
  Receive Date: 20251015
  Receipt Date: 20251223
  Transmission Date: 20260117
  Serious: Yes (Hospitalization)
  Sender: MERCK SHARP & DOHME LLC
  Company Number: JP-009507513-2337465

PATIENT
  Sex: Female

DRUGS (2)
  1. KEYTRUDA [Suspect]
     Active Substance: PEMBROLIZUMAB
     Indication: Uterine cancer
     Dosage: LAST ADMIN DATE:2025
     Route: 041
     Dates: start: 202503
  2. LENVIMA [Suspect]
     Active Substance: LENVATINIB
     Indication: Uterine cancer
     Dosage: LAST ADMIN DATE:2025
     Route: 065
     Dates: start: 202503

REACTIONS (1)
  - Encephalitis influenzal [Recovered/Resolved]

NARRATIVE: CASE EVENT DATE: 20250101
